FAERS Safety Report 18007087 (Version 1)
Quarter: 2020Q3

REPORT INFORMATION
  Report Type: Spontaneous
  Country: US (occurrence: US)
  Receive Date: 20200710
  Receipt Date: 20200710
  Transmission Date: 20201103
  Serious: No
  Sender: FDA-Public Use
  Company Number: None

PATIENT

DRUGS (3)
  1. TRICITRATES [Suspect]
     Active Substance: CITRIC ACID MONOHYDRATE\POTASSIUM CITRATE\SODIUM CITRATE
     Route: 048
  2. VALPROIC ACID 250 MG/5 ML [Suspect]
     Active Substance: VALPROIC ACID
     Route: 048
  3. VALPROIC ACID. [Suspect]
     Active Substance: VALPROIC ACID
     Route: 048

REACTIONS (4)
  - Product dispensing error [None]
  - Device computer issue [None]
  - Product label confusion [None]
  - Product barcode issue [None]
